FAERS Safety Report 4605880-2 (Version None)
Quarter: 2005Q2

REPORT INFORMATION
  Report Type: 
  Country: None (occurrence: None)
  Receive Date: 20050303
  Receipt Date: 20041122
  Transmission Date: 20051028
  Serious: No
  Sender: FDA-Public Use
  Company Number: 200420136BWH

PATIENT
  Age: 69 Year
  Sex: Male
  Weight: 92.5338 kg

DRUGS (10)
  1. LEVITRA [Suspect]
     Indication: ERECTILE DYSFUNCTION
     Dosage: SEE IMAGE
     Route: 048
     Dates: start: 20040601
  2. LEVITRA [Suspect]
     Indication: ERECTILE DYSFUNCTION
     Dosage: SEE IMAGE
     Route: 048
     Dates: start: 20040701
  3. LEVITRA [Suspect]
     Indication: ERECTILE DYSFUNCTION
     Dosage: SEE IMAGE
     Route: 048
     Dates: start: 20040812
  4. ATENOLOL [Concomitant]
  5. LISINOPRIL [Concomitant]
  6. RITALIN [Concomitant]
  7. HYDROCHLOROTHIAZIDE [Concomitant]
  8. FELODIPINE SA [Concomitant]
  9. PAXIL [Concomitant]
  10. OXYGEN [Concomitant]

REACTIONS (2)
  - DYSPNOEA [None]
  - ERECTILE DYSFUNCTION [None]
